FAERS Safety Report 5243942-X (Version None)
Quarter: 2007Q1

REPORT INFORMATION
  Report Type: 
  Country: None (occurrence: None)
  Receive Date: 20070222
  Receipt Date: 20070212
  Transmission Date: 20070707
  Serious: Yes (Hospitalization)
  Sender: FDA-Public Use
  Company Number: BR-AVENTIS-200710730EU

PATIENT
  Age: 82 Year
  Sex: Male
  Weight: 50 kg

DRUGS (2)
  1. CLEXANE [Suspect]
     Indication: CARDIAC FIBRILLATION
     Dosage: DOSE: 1 SYRINGUE
     Route: 030
     Dates: start: 20070101, end: 20070101
  2. ANCORON [Concomitant]

REACTIONS (7)
  - BURNING SENSATION [None]
  - HAEMATOMA [None]
  - INCORRECT ROUTE OF DRUG ADMINISTRATION [None]
  - INJECTION SITE PAIN [None]
  - LOCAL SWELLING [None]
  - MOVEMENT DISORDER [None]
  - PARAESTHESIA [None]
